FAERS Safety Report 17583887 (Version 1)
Quarter: 2020Q1

REPORT INFORMATION
  Report Type: Spontaneous
  Country: ES (occurrence: ES)
  Receive Date: 20200326
  Receipt Date: 20200326
  Transmission Date: 20200409
  Serious: Yes (Other)
  Sender: FDA-Public Use
  Company Number: ES-SUN PHARMACEUTICAL INDUSTRIES LTD-2020RR-241504

PATIENT
  Age: 72 Year
  Sex: Female

DRUGS (6)
  1. PACLITAXEL. [Suspect]
     Active Substance: PACLITAXEL
     Indication: OVARIAN CANCER
     Dosage: 18 DOSES (6 CYCLES)
     Route: 065
     Dates: start: 200907, end: 201001
  2. CARBOPLATIN. [Suspect]
     Active Substance: CARBOPLATIN
     Dosage: WEEKLY, 4 CYCLES
     Route: 065
  3. LETROZOLE. [Suspect]
     Active Substance: LETROZOLE
     Indication: AROMATASE INHIBITION THERAPY
     Dosage: UNK
     Route: 065
  4. CARBOPLATIN. [Suspect]
     Active Substance: CARBOPLATIN
     Indication: OVARIAN CANCER
     Dosage: 18 DOSES (6 CYCLES)
     Route: 065
     Dates: start: 200907, end: 201001
  5. ZOLEDRONIC ACID. [Concomitant]
     Active Substance: ZOLEDRONIC ACID
     Indication: OSTEOPOROSIS
     Route: 065
  6. PACLITAXEL. [Suspect]
     Active Substance: PACLITAXEL
     Dosage: WEEKLY, 4 CYCLES
     Route: 065

REACTIONS (5)
  - Neutropenia [Unknown]
  - Disease progression [Unknown]
  - Therapy partial responder [Unknown]
  - Asthenia [Unknown]
  - Bone pain [Unknown]
